FAERS Safety Report 14524514 (Version 1)
Quarter: 2018Q1

REPORT INFORMATION
  Report Type: Spontaneous
  Country: US (occurrence: US)
  Receive Date: 20180213
  Receipt Date: 20180213
  Transmission Date: 20180509
  Serious: No
  Sender: FDA-Public Use
  Company Number: US-BRISTOL-MYERS SQUIBB COMPANY-BMS-2018-013120

PATIENT
  Sex: Male
  Weight: 82.1 kg

DRUGS (1)
  1. YERVOY [Suspect]
     Active Substance: IPILIMUMAB
     Indication: METASTATIC MALIGNANT MELANOMA
     Dosage: FOR 4 DOSES, THEN EVERY 3 MONTHS
     Route: 042
     Dates: start: 20170915

REACTIONS (1)
  - Weight increased [Unknown]
